FAERS Safety Report 5340530-1 (Version None)
Quarter: 2007Q2

REPORT INFORMATION
  Report Type: 
  Country: None (occurrence: None)
  Receive Date: 20070531
  Receipt Date: 20070525
  Transmission Date: 20071010
  Serious: Yes (Other)
  Sender: FDA-Public Use
  Company Number: PT-PFIZER INC-2007010826

PATIENT
  Sex: Female

DRUGS (4)
  1. ZOLOFT [Suspect]
     Indication: DEPRESSION
     Route: 048
     Dates: start: 20060717, end: 20070205
  2. VICTAN [Concomitant]
     Indication: ANXIETY
     Dosage: DAILY DOSE:4MG-TEXT:1MG+1MG+2MG
     Route: 048
  3. FOSAMAX [Concomitant]
     Route: 048
  4. CALCIUM CHLORIDE [Concomitant]
     Route: 048

REACTIONS (2)
  - LEUKOPENIA [None]
  - NEUTROPENIA [None]
